FAERS Safety Report 7974032-0 (Version None)
Quarter: 2011Q4

REPORT INFORMATION
  Report Type: 
  Country: None (occurrence: None)
  Receive Date: 20111213
  Receipt Date: 20111205
  Transmission Date: 20120403
  Serious: Yes (Death)
  Sender: FDA-Public Use
  Company Number: IE-GLAXOSMITHKLINE-B0760242A

PATIENT
  Sex: Male

DRUGS (5)
  1. VOTRIENT [Suspect]
     Indication: RENAL CELL CARCINOMA
     Dosage: 800MG PER DAY
     Route: 048
     Dates: start: 20110729
  2. NAPROSYN [Concomitant]
     Route: 048
  3. OXYCONTIN [Concomitant]
     Dosage: 40MG PER DAY
     Route: 048
  4. LYRICA [Concomitant]
     Dosage: 200MG PER DAY
     Route: 048
  5. OXYCODONE HCL [Concomitant]
     Route: 048

REACTIONS (1)
  - RENAL CANCER [None]
